FAERS Safety Report 10158646 (Version 5)
Quarter: 2014Q3

REPORT INFORMATION
  Report Type: Report from Study
  Country: DE (occurrence: DE)
  Receive Date: 20140508
  Receipt Date: 20140714
  Transmission Date: 20150326
  Serious: Yes (Other)
  Sender: FDA-Public Use
  Company Number: DE-BEH-2014042140

PATIENT
  Age: 60 Year
  Sex: Female
  Weight: 75 kg

DRUGS (19)
  1. PRIVIGEN [Suspect]
     Active Substance: HUMAN IMMUNOGLOBULIN G
     Indication: LIGHT CHAIN DISEASE
     Route: 042
     Dates: start: 20130910, end: 20130910
  2. PRIVIGEN [Suspect]
     Active Substance: HUMAN IMMUNOGLOBULIN G
     Route: 042
     Dates: start: 20131105, end: 20131105
  3. CYCLOPHOSPHAMIDE. [Concomitant]
     Active Substance: CYCLOPHOSPHAMIDE
  4. PRIVIGEN [Suspect]
     Active Substance: HUMAN IMMUNOGLOBULIN G
     Route: 042
     Dates: start: 20131008, end: 20131008
  5. PRIVIGEN [Suspect]
     Active Substance: HUMAN IMMUNOGLOBULIN G
     Route: 042
     Dates: start: 20140109, end: 20140109
  6. PANTOPRAZOLE [Concomitant]
     Active Substance: PANTOPRAZOLE SODIUM
     Dosage: 40 MG 1-0-1
  7. MAGNESIUM [Concomitant]
     Active Substance: MAGNESIUM
     Dosage: 1-0-0
  8. GLUCOSE [Concomitant]
     Active Substance: DEXTROSE
     Indication: PREMEDICATION
     Route: 042
     Dates: start: 20131008, end: 20131008
  9. GLUCOSE [Concomitant]
     Active Substance: DEXTROSE
     Indication: PREMEDICATION
     Route: 042
     Dates: start: 20140109, end: 20140109
  10. L-THYROXIN [Concomitant]
     Active Substance: LEVOTHYROXINE SODIUM
     Dosage: 100 UG 1-0-0
  11. TARGIN [Concomitant]
     Active Substance: NALOXONE HYDROCHLORIDE\OXYCODONE HYDROCHLORIDE
     Dosage: 23 MG / 710 MG 1-0-1
  12. TORASEMID [Concomitant]
     Active Substance: TORSEMIDE
     Dosage: 5 MG 1-0-0
  13. GLUCOSE [Concomitant]
     Active Substance: DEXTROSE
     Indication: PREMEDICATION
     Route: 042
     Dates: start: 20130910, end: 20130910
  14. DEXAMETHASONE. [Concomitant]
     Active Substance: DEXAMETHASONE
  15. BORTEZOMIB [Concomitant]
     Active Substance: BORTEZOMIB
  16. PRIVIGEN [Suspect]
     Active Substance: HUMAN IMMUNOGLOBULIN G
     Route: 042
     Dates: start: 20131211, end: 20131211
  17. REVLIMID [Concomitant]
     Active Substance: LENALIDOMIDE
     Dosage: 10 MG 2-0-0
  18. GLUCOSE [Concomitant]
     Active Substance: DEXTROSE
     Indication: PREMEDICATION
     Route: 042
     Dates: start: 20131105, end: 20131105
  19. GLUCOSE [Concomitant]
     Active Substance: DEXTROSE
     Indication: PREMEDICATION
     Route: 042
     Dates: start: 20131211, end: 20131211

REACTIONS (7)
  - Pyrexia [Recovering/Resolving]
  - Haematemesis [Recovered/Resolved]
  - Nasopharyngitis [Recovered/Resolved]
  - Pyrexia [Recovered/Resolved]
  - Pancytopenia [Recovered/Resolved]
  - Oropharyngeal pain [Recovered/Resolved]
  - Oesophageal candidiasis [Recovered/Resolved]

NARRATIVE: CASE EVENT DATE: 20131011
